FAERS Safety Report 7824785-7 (Version None)
Quarter: 2011Q4

REPORT INFORMATION
  Report Type: 
  Country: None (occurrence: None)
  Receive Date: 20111019
  Receipt Date: 20110222
  Transmission Date: 20120403
  Serious: No
  Sender: FDA-Public Use
  Company Number: US-BRISTOL-MYERS SQUIBB COMPANY-15503212

PATIENT
  Age: 81 Year
  Sex: Male
  Weight: 95 kg

DRUGS (2)
  1. AVALIDE [Suspect]
     Indication: HYPERTENSION
     Dosage: 1DF: 300/25MG  RECEIVED MORE THAN 2 YEARS
     Dates: start: 20080801, end: 20110121
  2. METOPROLOL TARTRATE [Concomitant]

REACTIONS (1)
  - DRUG INEFFECTIVE [None]
